FAERS Safety Report 18027708 (Version 1)
Quarter: 2020Q3

REPORT INFORMATION
  Report Type: Report from Study
  Country: PT (occurrence: PT)
  Receive Date: 20200715
  Receipt Date: 20200715
  Transmission Date: 20201103
  Serious: Yes (Other)
  Sender: FDA-Public Use
  Company Number: PT-MYLANLABS-2020M1064396

PATIENT
  Sex: Female

DRUGS (8)
  1. ESTRADIOL. [Suspect]
     Active Substance: ESTRADIOL
     Indication: HORMONE REPLACEMENT THERAPY
     Dosage: HAD BEEN RECEIVING FOR 16 YEARS
     Route: 065
  2. DROSPIRENONE [Suspect]
     Active Substance: DROSPIRENONE
     Indication: STEROID THERAPY
  3. NORGESTREL [Suspect]
     Active Substance: NORGESTREL
     Indication: STEROID THERAPY
  4. ETHINYLESTRADIOL [Suspect]
     Active Substance: ETHINYL ESTRADIOL
     Indication: HORMONE REPLACEMENT THERAPY
     Dosage: HAD BEEN RECEIVING FOR 16 YEARS
     Route: 065
  5. DROSPIRENONE [Suspect]
     Active Substance: DROSPIRENONE
     Indication: HORMONE REPLACEMENT THERAPY
     Dosage: HAD BEEN RECEIVING FOR 16 YEARS
     Route: 065
  6. NORGESTREL [Suspect]
     Active Substance: NORGESTREL
     Indication: HORMONE REPLACEMENT THERAPY
     Dosage: HAD BEEN RECEIVING FOR 16 YEARS
     Route: 065
  7. ESTRADIOL. [Suspect]
     Active Substance: ESTRADIOL
     Indication: STEROID THERAPY
  8. ETHINYLESTRADIOL [Suspect]
     Active Substance: ETHINYL ESTRADIOL
     Indication: STEROID THERAPY

REACTIONS (1)
  - Carotid artery thrombosis [Unknown]
